FAERS Safety Report 4607853-2 (Version None)
Quarter: 2005Q1

REPORT INFORMATION
  Report Type: 
  Country: None (occurrence: None)
  Receive Date: 20050310
  Receipt Date: 20050225
  Transmission Date: 20050727
  Serious: Yes (Other)
  Sender: FDA-Public Use
  Company Number: HQWYE607425FEB05

PATIENT
  Age: 91 Year
  Sex: Female

DRUGS (5)
  1. CORDARONE [Suspect]
     Indication: ATRIAL FIBRILLATION
     Dosage: 50 MG 1X PER 1 DAY ORAL
     Route: 048
     Dates: start: 19900101
  2. CORDARONE [Suspect]
     Indication: ATRIAL FIBRILLATION
     Dosage: 50 MG 1X PER 1 DAY ORAL
     Route: 048
     Dates: start: 19990801
  3. TANAKAN (GINGKO TREE LEAVES EXTRACT) [Concomitant]
  4. HARPAGOPHYTUM PROCUMBENS  (HARPAGOPHYTUM PROCUMBENS) [Concomitant]
  5. ASPIRIN [Concomitant]

REACTIONS (4)
  - PEMPHIGOID [None]
  - PLEURAL EFFUSION [None]
  - PRURIGO [None]
  - URTICARIA [None]
